FAERS Safety Report 19650729 (Version 1)
Quarter: 2021Q3

REPORT INFORMATION
  Report Type: Report from Study
  Country: CO (occurrence: CO)
  Receive Date: 20210802
  Receipt Date: 20210802
  Transmission Date: 20211014
  Serious: Yes (Other)
  Sender: FDA-Public Use
  Company Number: NVSC2021CO151406

PATIENT
  Sex: Female
  Weight: 65 kg

DRUGS (4)
  1. GOLIMUMAB [Concomitant]
     Active Substance: GOLIMUMAB
     Indication: PRODUCT USED FOR UNKNOWN INDICATION
     Dosage: UNK
     Route: 065
  2. COSENTYX [Suspect]
     Active Substance: SECUKINUMAB
     Indication: PSORIATIC ARTHROPATHY
     Dosage: 150 MG, QMO
     Route: 058
     Dates: start: 20190515
  3. AMLODIPINE [Concomitant]
     Active Substance: AMLODIPINE BESYLATE
     Indication: HYPERTENSION
     Dosage: 5 MG, Q12H (STARTED 10 YEARS)
     Route: 048
  4. LEFLUNOMIDE. [Concomitant]
     Active Substance: LEFLUNOMIDE
     Indication: PSORIATIC ARTHROPATHY
     Dosage: UNK UNK, Q24H (STARTED 4 YEARS AGO)
     Route: 048

REACTIONS (7)
  - Pain in extremity [Unknown]
  - Fibula fracture [Unknown]
  - Arthralgia [Unknown]
  - Tibia fracture [Unknown]
  - Drug ineffective [Unknown]
  - Neoplasm [Unknown]
  - Psoriatic arthropathy [Unknown]
